FAERS Safety Report 18328735 (Version 1)
Quarter: 2020Q3

REPORT INFORMATION
  Report Type: Spontaneous
  Country: US (occurrence: US)
  Receive Date: 20200929
  Receipt Date: 20200929
  Transmission Date: 20201103
  Serious: Yes (Hospitalization)
  Sender: FDA-Public Use
  Company Number: None

PATIENT
  Age: 11 Year
  Sex: Female
  Weight: 29.1 kg

DRUGS (1)
  1. CISPLATIN. [Suspect]
     Active Substance: CISPLATIN

REACTIONS (10)
  - Electrolyte imbalance [None]
  - Pyrexia [None]
  - Weight decreased [None]
  - Dehydration [None]
  - Hypomagnesaemia [None]
  - Decreased appetite [None]
  - Anaemia [None]
  - Hyponatraemia [None]
  - Hypophosphataemia [None]
  - Diarrhoea [None]

NARRATIVE: CASE EVENT DATE: 20200909
